FAERS Safety Report 6266047-8 (Version None)
Quarter: 2009Q3

REPORT INFORMATION
  Report Type: 
  Country: None (occurrence: None)
  Receive Date: 20090713
  Receipt Date: 20090708
  Transmission Date: 20100115
  Serious: Yes (Death)
  Sender: FDA-Public Use
  Company Number: US-CELGENEUS-163-21880-09041217

PATIENT
  Sex: Female

DRUGS (3)
  1. REVLIMID [Suspect]
     Indication: MULTIPLE MYELOMA
     Route: 048
     Dates: start: 20071213, end: 20081101
  2. REVLIMID [Suspect]
     Route: 048
     Dates: start: 20090410
  3. REVLIMID [Suspect]
     Route: 048
     Dates: start: 20081201, end: 20081201

REACTIONS (1)
  - MULTIPLE MYELOMA [None]
